FAERS Safety Report 12949387 (Version 1)
Quarter: 2016Q4

REPORT INFORMATION
  Report Type: Spontaneous
  Country: US (occurrence: US)
  Receive Date: 20161116
  Receipt Date: 20161116
  Transmission Date: 20170207
  Serious: No
  Sender: FDA-Public Use
  Company Number: US-NOVOPROD-500660

PATIENT
  Sex: Female

DRUGS (1)
  1. NOVOLOG MIX 70/30 [Suspect]
     Active Substance: INSULIN ASPART
     Indication: PRODUCT USED FOR UNKNOWN INDICATION
     Dosage: UNK
     Route: 058
     Dates: start: 201606

REACTIONS (7)
  - Vision blurred [Unknown]
  - Blood glucose increased [Unknown]
  - Fatigue [Unknown]
  - Headache [Unknown]
  - Paraesthesia [Unknown]
  - Swelling [Unknown]
  - Pruritus [Unknown]

NARRATIVE: CASE EVENT DATE: 201606
